FAERS Safety Report 16022964 (Version 1)
Quarter: 2019Q1

REPORT INFORMATION
  Report Type: Spontaneous
  Country: US (occurrence: US)
  Receive Date: 20190301
  Receipt Date: 20190301
  Transmission Date: 20190418
  Serious: No
  Sender: FDA-Public Use
  Company Number: US-BAYER-2019-042108

PATIENT
  Age: 59 Year
  Sex: Female
  Weight: 55.78 kg

DRUGS (1)
  1. MIRALAX [Suspect]
     Active Substance: POLYETHYLENE GLYCOL 3350
     Indication: GASTROINTESTINAL DISORDER
     Dosage: I TAKE PARTIAL DOSES, QD
     Route: 048
     Dates: start: 201808

REACTIONS (4)
  - Product taste abnormal [None]
  - Underdose [Unknown]
  - Incorrect product administration duration [Unknown]
  - Product odour abnormal [None]

NARRATIVE: CASE EVENT DATE: 201808
